FAERS Safety Report 10219448 (Version 1)
Quarter: 2014Q2

REPORT INFORMATION
  Report Type: Spontaneous
  Country: US (occurrence: None)
  Receive Date: 20140604
  Receipt Date: 20140604
  Transmission Date: 20141212
  Serious: Yes (Hospitalization, Disabling)
  Sender: FDA-Public Use
  Company Number: None

PATIENT
  Age: 48 Year
  Sex: Female
  Weight: 77.11 kg

DRUGS (1)
  1. BOTOX [Suspect]
     Indication: SKIN COSMETIC PROCEDURE

REACTIONS (13)
  - VIIth nerve paralysis [None]
  - Headache [None]
  - Palpitations [None]
  - Nausea [None]
  - Muscular weakness [None]
  - Vertigo [None]
  - Serum ferritin decreased [None]
  - Dizziness [None]
  - Dry mouth [None]
  - Dysphagia [None]
  - Urinary incontinence [None]
  - Asthenia [None]
  - Activities of daily living impaired [None]
